FAERS Safety Report 13954667 (Version 1)
Quarter: 2017Q3

REPORT INFORMATION
  Report Type: Spontaneous
  Country: US (occurrence: US)
  Receive Date: 20170910
  Receipt Date: 20170910
  Transmission Date: 20171128
  Serious: Yes (Life-Threatening, Hospitalization)
  Sender: FDA-Public Use
  Company Number: None

PATIENT
  Age: 61 Year
  Sex: Female
  Weight: 104.4 kg

DRUGS (6)
  1. ALBUTERAL IPRATROPIUM BROMIDE [Concomitant]
  2. ZOCAR [Concomitant]
  3. BREO ELLIPTA [Suspect]
     Active Substance: FLUTICASONE FUROATE\VILANTEROL TRIFENATATE
     Indication: DYSPNOEA
     Dosage: ?          QUANTITY:1 INHALATION(S);?
     Route: 048
  4. XYZAL [Concomitant]
     Active Substance: LEVOCETIRIZINE DIHYDROCHLORIDE
  5. SINGULAIR [Concomitant]
     Active Substance: MONTELUKAST SODIUM
  6. CENTRUM [Concomitant]
     Active Substance: VITAMINS

REACTIONS (3)
  - Cardiac failure congestive [None]
  - Pulmonary oedema [None]
  - Heart rate increased [None]

NARRATIVE: CASE EVENT DATE: 20170813
